FAERS Safety Report 11465642 (Version 6)
Quarter: 2016Q1

REPORT INFORMATION
  Report Type: Report from Study
  Country: US (occurrence: US)
  Receive Date: 20150907
  Receipt Date: 20160205
  Transmission Date: 20160525
  Serious: Yes (Other)
  Sender: FDA-Public Use
  Company Number: US-UCBSA-2015019303

PATIENT
  Sex: Male
  Weight: 77 kg

DRUGS (5)
  1. CERTOLIZUMAB PEGOL [Suspect]
     Active Substance: CERTOLIZUMAB PEGOL
     Indication: ANKYLOSING SPONDYLITIS
     Dosage: 400 MG, MONTHLY (QM)
     Route: 058
     Dates: start: 2015, end: 20150901
  2. OXYCODONE/APAP [Concomitant]
     Active Substance: ACETAMINOPHEN\OXYCODONE HYDROCHLORIDE
     Indication: PRODUCT USED FOR UNKNOWN INDICATION
     Dosage: 2 DF, 2X/DAY (BID), STRENGTH: 10/325
     Route: 048
  3. CERTOLIZUMAB PEGOL [Suspect]
     Active Substance: CERTOLIZUMAB PEGOL
     Indication: RHEUMATOID ARTHRITIS
     Dosage: 200 MG, EV 2 WEEKS(QOW)
     Dates: start: 201505, end: 2015
  4. CERTOLIZUMAB PEGOL [Suspect]
     Active Substance: CERTOLIZUMAB PEGOL
     Dosage: 200 MG, UNK
  5. CYCLOBENZAPRINE [Concomitant]
     Active Substance: CYCLOBENZAPRINE
     Indication: PRODUCT USED FOR UNKNOWN INDICATION
     Dosage: 5 MG, ONCE DAILY (QD), 1 TABLET AT BEDTIME

REACTIONS (8)
  - Crohn^s disease [Unknown]
  - Irritability [Unknown]
  - Pain [Unknown]
  - Muscle spasms [Unknown]
  - Drug ineffective [Unknown]
  - Spinal operation [Unknown]
  - Somnolence [Unknown]
  - Night sweats [Unknown]

NARRATIVE: CASE EVENT DATE: 2015
